FAERS Safety Report 15698684 (Version 1)
Quarter: 2018Q4

REPORT INFORMATION
  Report Type: Spontaneous
  Country: FR (occurrence: FR)
  Receive Date: 20181207
  Receipt Date: 20181207
  Transmission Date: 20190205
  Serious: Yes (Life-Threatening)
  Sender: FDA-Public Use
  Company Number: FR-ACCORD-094914

PATIENT
  Age: 69 Year
  Sex: Female
  Weight: 97 kg

DRUGS (22)
  1. CYCLOPHOSPHAMID SANDOZ [Suspect]
     Active Substance: CYCLOPHOSPHAMIDE
     Indication: BREAST CANCER
     Route: 042
  2. SPIRONOLACTONE. [Concomitant]
     Active Substance: SPIRONOLACTONE
  3. ATENOLOL/ATENOLOL HYDROCHLORIDE [Concomitant]
  4. SPECIAFOLDINE [Concomitant]
     Active Substance: FOLIC ACID
  5. SIMVASTATIN. [Concomitant]
     Active Substance: SIMVASTATIN
  6. LANTUS [Concomitant]
     Active Substance: INSULIN GLARGINE
  7. DOCETAXEL ACCORD [Suspect]
     Active Substance: DOCETAXEL
     Indication: BREAST CANCER
     Route: 042
  8. NOVONORM [Concomitant]
     Active Substance: REPAGLINIDE
  9. EMEND [Concomitant]
     Active Substance: APREPITANT
     Dates: start: 20171227, end: 20171229
  10. COTAREG [Concomitant]
     Active Substance: HYDROCHLOROTHIAZIDE\VALSARTAN
  11. SALAZOPYRINE [Concomitant]
     Active Substance: SULFASALAZINE
  12. SIFROL [Concomitant]
     Active Substance: PRAMIPEXOLE
  13. XANAX [Concomitant]
     Active Substance: ALPRAZOLAM
  14. METFORMIN [Concomitant]
     Active Substance: METFORMIN HYDROCHLORIDE
  15. METHOTREXATE. [Concomitant]
     Active Substance: METHOTREXATE
  16. RIVOTRIL [Concomitant]
     Active Substance: CLONAZEPAM
  17. PANTOPRAZOLE [Concomitant]
     Active Substance: PANTOPRAZOLE
  18. ZOPHREN [Concomitant]
     Active Substance: ONDANSETRON
     Dates: start: 20171227, end: 20171229
  19. ASPEGIC (ASPIRIN) [Concomitant]
     Active Substance: ASPIRIN
  20. LERCAN [Concomitant]
     Active Substance: LERCANIDIPINE
  21. SOLUPRED [PREDNISOLONE METASULFOBENZOATE SODIUM] [Concomitant]
     Active Substance: PREDNISOLONE SODIUM METAZOATE
  22. SKENAN [Concomitant]
     Active Substance: MORPHINE SULFATE

REACTIONS (3)
  - Pancytopenia [Recovered/Resolved]
  - Respiratory distress [Recovered/Resolved]
  - Rash [Recovered/Resolved]

NARRATIVE: CASE EVENT DATE: 20171227
